FAERS Safety Report 4908004-7 (Version None)
Quarter: 2006Q1

REPORT INFORMATION
  Report Type: 
  Country: None (occurrence: None)
  Receive Date: 20060210
  Receipt Date: 20060206
  Transmission Date: 20060701
  Serious: Yes (Other)
  Sender: FDA-Public Use
  Company Number: US-GLAXOSMITHKLINE-A0592730A

PATIENT
  Sex: Female

DRUGS (1)
  1. PAXIL CR [Suspect]
     Indication: DRUG USE FOR UNKNOWN INDICATION
     Route: 048
     Dates: start: 20051101

REACTIONS (9)
  - ANTEPARTUM HAEMORRHAGE [None]
  - COMPLICATION OF PREGNANCY [None]
  - DIARRHOEA [None]
  - DRUG EXPOSURE DURING PREGNANCY [None]
  - DRUG WITHDRAWAL SYNDROME [None]
  - NAUSEA [None]
  - NIGHT SWEATS [None]
  - PARAESTHESIA [None]
  - VAGINAL HAEMORRHAGE [None]
